FAERS Safety Report 17956358 (Version 1)
Quarter: 2020Q2

REPORT INFORMATION
  Report Type: Spontaneous
  Country: US (occurrence: US)
  Receive Date: 20200629
  Receipt Date: 20200629
  Transmission Date: 20200714
  Serious: No
  Sender: FDA-Public Use
  Company Number: US-AMGEN INC.-USASP2020102001

PATIENT
  Age: 60 Year

DRUGS (2)
  1. AIMOVIG [Suspect]
     Active Substance: ERENUMAB-AOOE
     Indication: PRODUCT USED FOR UNKNOWN INDICATION
     Dosage: UNK
     Route: 065
     Dates: start: 201809
  2. AIMOVIG [Suspect]
     Active Substance: ERENUMAB-AOOE
     Dosage: UNK (DOUBLE THE DOSE)
     Route: 065
     Dates: start: 2018

REACTIONS (1)
  - Skin disorder [Not Recovered/Not Resolved]
